FAERS Safety Report 5104645-5 (Version None)
Quarter: 2006Q3

REPORT INFORMATION
  Report Type: 
  Country: None (occurrence: None)
  Receive Date: 20060911
  Receipt Date: 20060831
  Transmission Date: 20061208
  Serious: Yes (Life-Threatening, Hospitalization, Disabling, Other)
  Sender: FDA-Public Use
  Company Number: 112337ISR

PATIENT
  Age: 53 Year
  Sex: Female

DRUGS (1)
  1. LORATADINE [Suspect]
     Dosage: ORAL
     Route: 048
     Dates: start: 20060710, end: 20060710

REACTIONS (1)
  - VENTRICULAR FIBRILLATION [None]
